FAERS Safety Report 8615273-9 (Version None)
Quarter: 2012Q3

REPORT INFORMATION
  Report Type: 
  Country: None (occurrence: None)
  Receive Date: 20120823
  Receipt Date: 20120817
  Transmission Date: 20120928
  Serious: No
  Sender: FDA-Public Use
  Company Number: US-PFIZER INC-2012187455

PATIENT
  Age: 61 Year
  Sex: Female

DRUGS (4)
  1. ESTRING [Suspect]
     Indication: DYSPAREUNIA
  2. HALCION [Concomitant]
     Dosage: UNK
  3. ESTRING [Suspect]
     Indication: ATROPHIC VULVOVAGINITIS
     Dosage: UNK
     Route: 067
     Dates: start: 20120401
  4. XANAX [Concomitant]
     Dosage: UNK

REACTIONS (2)
  - VAGINAL DISCHARGE [None]
  - PRODUCT ODOUR ABNORMAL [None]
